FAERS Safety Report 6502977-7 (Version None)
Quarter: 2009Q4

REPORT INFORMATION
  Report Type: 
  Country: None (occurrence: None)
  Receive Date: 20091217
  Receipt Date: 20091211
  Transmission Date: 20100525
  Serious: Yes (Life-Threatening, Hospitalization)
  Sender: FDA-Public Use
  Company Number: PHHY2009US54444

PATIENT
  Sex: Male

DRUGS (3)
  1. EXJADE [Suspect]
     Indication: IRON OVERLOAD
     Dosage: 1000 UNK / DAY
     Route: 048
     Dates: end: 20090112
  2. EXJADE [Suspect]
     Dosage: 1500 MG/DAY
     Route: 048
     Dates: start: 20090601
  3. EXJADE [Suspect]
     Route: 048

REACTIONS (13)
  - BLOOD UREA INCREASED [None]
  - CONCOMITANT DISEASE AGGRAVATED [None]
  - CONFUSIONAL STATE [None]
  - DEHYDRATION [None]
  - DYSURIA [None]
  - FLANK PAIN [None]
  - LETHARGY [None]
  - MECHANICAL VENTILATION [None]
  - NEPHROLITHIASIS [None]
  - PYREXIA [None]
  - SEPSIS [None]
  - URINARY TRACT INFECTION [None]
  - URINE OUTPUT DECREASED [None]
